FAERS Safety Report 8271907-2 (Version None)
Quarter: 2012Q1

REPORT INFORMATION
  Report Type: 
  Country: None (occurrence: None)
  Receive Date: 20120308
  Receipt Date: 20111121
  Transmission Date: 20120608
  Serious: No
  Sender: FDA-Public Use
  Company Number: PHEH2011US009905

PATIENT
  Age: 32 Year
  Sex: Female

DRUGS (7)
  1. LEVOTHYROXINE SODIUM [Concomitant]
  2. ATIVAN [Concomitant]
  3. TRILEPTAL [Concomitant]
  4. BUTALBITAL [Concomitant]
  5. FANAPT [Suspect]
     Indication: BIPOLAR DISORDER
     Dosage: 2 MG, TID ; 2 MG, AT NIGHT
  6. TOPAMAX [Concomitant]
  7. FUROSEMIDE [Concomitant]

REACTIONS (1)
  - HEADACHE [None]
